FAERS Safety Report 12484169 (Version 1)
Quarter: 2016Q2

REPORT INFORMATION
  Report Type: Spontaneous
  Country: US (occurrence: None)
  Receive Date: 20160620
  Receipt Date: 20160620
  Transmission Date: 20160815
  Serious: No
  Sender: FDA-Public Use
  Company Number: None

PATIENT
  Age: 43 Year
  Sex: Male
  Weight: 58.97 kg

DRUGS (2)
  1. EQUATE ANTI DIARRHEAL [Suspect]
     Active Substance: LOPERAMIDE HYDROCHLORIDE
     Indication: DRUG WITHDRAWAL SYNDROME
     Dosage: 72 TABLET(S)
     Dates: end: 20160617
  2. JOINT VITAMIN [Concomitant]

REACTIONS (4)
  - Drug abuse [None]
  - Paranoia [None]
  - Anger [None]
  - Drug dependence [None]

NARRATIVE: CASE EVENT DATE: 20160617
